FAERS Safety Report 25493135 (Version 1)
Quarter: 2025Q2

REPORT INFORMATION
  Report Type: Spontaneous
  Country: CA (occurrence: CA)
  Receive Date: 20250630
  Receipt Date: 20250630
  Transmission Date: 20250717
  Serious: Yes (Hospitalization, Other)
  Sender: MYLAN
  Company Number: CA-MYLANLABS-2025M1053658

PATIENT
  Age: 33 Year
  Sex: Female

DRUGS (3)
  1. ISOTRETINOIN [Suspect]
     Active Substance: ISOTRETINOIN
     Indication: Acne
  2. PREDNISONE [Suspect]
     Active Substance: PREDNISONE
     Indication: Acne
  3. PREDNISONE [Suspect]
     Active Substance: PREDNISONE

REACTIONS (6)
  - Colon injury [Not Recovered/Not Resolved]
  - Colitis ulcerative [Not Recovered/Not Resolved]
  - Colorectal cancer [Not Recovered/Not Resolved]
  - Crohn^s disease [Not Recovered/Not Resolved]
  - Pouchitis [Not Recovered/Not Resolved]
  - Sacroiliitis [Not Recovered/Not Resolved]
